FAERS Safety Report 6593898-2 (Version None)
Quarter: 2010Q1

REPORT INFORMATION
  Report Type: 
  Country: None (occurrence: None)
  Receive Date: 20100222
  Receipt Date: 20100209
  Transmission Date: 20100710
  Serious: Yes (Other)
  Sender: FDA-Public Use
  Company Number: PHHY2010KR07223

PATIENT
  Sex: Female

DRUGS (2)
  1. ZOMETA [Suspect]
     Indication: OSTEOPOROSIS
     Dosage: UNK
     Route: 042
     Dates: start: 20100128
  2. IMMUNOSUPPRESSANTS [Concomitant]

REACTIONS (3)
  - ORAL MUCOSAL EXFOLIATION [None]
  - ORAL PAIN [None]
  - PAIN IN JAW [None]
